FAERS Safety Report 8900881 (Version 1)
Quarter: 2012Q4

REPORT INFORMATION
  Report Type: Report from Study
  Country: GB (occurrence: GB)
  Receive Date: 20121109
  Receipt Date: 20121109
  Transmission Date: 20130627
  Serious: Yes (Hospitalization)
  Sender: FDA-Public Use
  Company Number: GB-ELI_LILLY_AND_COMPANY-GB201211000061

PATIENT
  Age: 76 Year
  Sex: Male

DRUGS (3)
  1. GEMCITABINE HYDROCHLORIDE [Suspect]
     Indication: TRANSITIONAL CELL CARCINOMA
     Dosage: UNK
     Dates: start: 20120919
  2. CISPLATIN [Suspect]
     Indication: TRANSITIONAL CELL CARCINOMA
     Dosage: UNK
     Dates: start: 20120919
  3. SUNITINIB MALATE [Suspect]
     Indication: TRANSITIONAL CELL CARCINOMA
     Dosage: UNK
     Dates: start: 20120919

REACTIONS (5)
  - Neutropenic sepsis [Unknown]
  - Diarrhoea [Unknown]
  - Mucosal inflammation [Unknown]
  - Nausea [Unknown]
  - Vomiting [Unknown]
